FAERS Safety Report 18503432 (Version 3)
Quarter: 2021Q1

REPORT INFORMATION
  Report Type: Spontaneous
  Country: US (occurrence: US)
  Receive Date: 20201114
  Receipt Date: 20210120
  Transmission Date: 20210419
  Serious: Yes (Hospitalization, Other)
  Sender: FDA-Public Use
  Company Number: US-LUPIN PHARMACEUTICALS INC.-2020-08771

PATIENT
  Age: 69 Year
  Sex: Female

DRUGS (7)
  1. ECULIZUMAB [Concomitant]
     Active Substance: ECULIZUMAB
     Indication: RENAL TUBULAR NECROSIS
     Dosage: UNK
     Route: 065
  2. ECULIZUMAB [Concomitant]
     Active Substance: ECULIZUMAB
     Indication: THROMBOTIC MICROANGIOPATHY
  3. ENOXAPARIN [ENOXAPARIN SODIUM] [Concomitant]
     Active Substance: ENOXAPARIN SODIUM
     Indication: PRODUCT USED FOR UNKNOWN INDICATION
     Dosage: UNK
     Route: 065
  4. TOCILIZUMAB. [Suspect]
     Active Substance: TOCILIZUMAB
     Indication: COVID-19
     Dosage: UNK
     Route: 065
  5. HYDROXYCHLOROQUINE [Suspect]
     Active Substance: HYDROXYCHLOROQUINE
     Indication: COVID-19
     Dosage: INITIAL 2 DOSES WERE BEFORE ADMISSION AND REMAINING 3 DOSES WERE GIVEN ON THE INITIAL 3 DAYS OF HOSP
     Route: 065
  6. ANAKINRA [Suspect]
     Active Substance: ANAKINRA
     Indication: COVID-19
     Dosage: UNK
     Route: 065
  7. ECULIZUMAB [Concomitant]
     Active Substance: ECULIZUMAB
     Indication: RENAL CORTICAL NECROSIS

REACTIONS (2)
  - Thrombotic microangiopathy [Unknown]
  - Off label use [Unknown]
